FAERS Safety Report 11627458 (Version 1)
Quarter: 2015Q4

REPORT INFORMATION
  Report Type: Not Available
  Country: US (occurrence: US)
  Receive Date: 20151013
  Receipt Date: 20151013
  Transmission Date: 20160304
  Serious: No
  Sender: FDA-Public Use
  Company Number: US-3M-2015-US-000194

PATIENT
  Sex: Male

DRUGS (1)
  1. PERIDEX [Suspect]
     Active Substance: CHLORHEXIDINE GLUCONATE
     Dosage: 1/2 OUNCE ORAL RINSE TWICE DAILY
     Route: 048
     Dates: start: 20141212

REACTIONS (5)
  - Dizziness [Unknown]
  - Headache [Unknown]
  - Dysgeusia [Unknown]
  - Nausea [Unknown]
  - Decreased appetite [Unknown]

NARRATIVE: CASE EVENT DATE: 20141219
